FAERS Safety Report 16808641 (Version 1)
Quarter: 2019Q3

REPORT INFORMATION
  Report Type: Spontaneous
  Country: IT (occurrence: IT)
  Receive Date: 20190916
  Receipt Date: 20190916
  Transmission Date: 20191005
  Serious: Yes (Other)
  Sender: FDA-Public Use
  Company Number: IT-SUN PHARMACEUTICAL INDUSTRIES LTD-2019RR-220775

PATIENT
  Age: 9 Year
  Sex: Male

DRUGS (6)
  1. PREGABALIN. [Suspect]
     Active Substance: PREGABALIN
     Indication: FACIAL PAIN
     Dosage: UNK
     Route: 065
     Dates: start: 200609, end: 200611
  2. TOPIRAMATE. [Suspect]
     Active Substance: TOPIRAMATE
     Indication: FACIAL PAIN
     Dosage: UNK
     Route: 065
     Dates: start: 200609, end: 200611
  3. LAMOTRIGINE. [Suspect]
     Active Substance: LAMOTRIGINE
     Indication: TRIGEMINAL NEURALGIA
     Dosage: 200 MILLIGRAM, DAILY
     Route: 065
  4. CARBAMAZEPINE. [Suspect]
     Active Substance: CARBAMAZEPINE
     Indication: TRIGEMINAL NEURALGIA
     Dosage: UNK
     Route: 065
  5. GABAPENTIN. [Suspect]
     Active Substance: GABAPENTIN
     Indication: TRIGEMINAL NEURALGIA
     Dosage: UNK
     Route: 065
  6. OXCARBAZEPINE. [Suspect]
     Active Substance: OXCARBAZEPINE
     Indication: TRIGEMINAL NEURALGIA
     Dosage: 1200 MILLIGRAM, DAILY
     Route: 065

REACTIONS (2)
  - Product administered to patient of inappropriate age [Unknown]
  - Drug ineffective [Unknown]
